FAERS Safety Report 5179713-2 (Version None)
Quarter: 2006Q4

REPORT INFORMATION
  Report Type: 
  Country: None (occurrence: None)
  Receive Date: 20061212
  Receipt Date: 20061127
  Transmission Date: 20070319
  Serious: Yes (Other)
  Sender: FDA-Public Use
  Company Number: 2006S1000271

PATIENT
  Sex: Male

DRUGS (2)
  1. CUBICIN [Suspect]
     Dates: start: 20061003
  2. MOXIFLOXACIN HCL [Concomitant]

REACTIONS (4)
  - BONE PAIN [None]
  - HAEMOLYTIC ANAEMIA [None]
  - HEART VALVE OPERATION [None]
  - PAIN IN EXTREMITY [None]
